FAERS Safety Report 16324908 (Version 1)
Quarter: 2019Q2

REPORT INFORMATION
  Report Type: Spontaneous
  Country: US (occurrence: US)
  Receive Date: 20190517
  Receipt Date: 20190517
  Transmission Date: 20190711
  Serious: No
  Sender: FDA-Public Use
  Company Number: US-DRREDDYS-USA/USA/19/0110068

PATIENT
  Age: 96 Year
  Sex: Male
  Weight: 65.25 kg

DRUGS (2)
  1. AMLODIPINE [Concomitant]
     Active Substance: AMLODIPINE BESYLATE
     Indication: HYPERTENSION
  2. OMEPRAZOLE MAGNESIUM DELAYED RELEASE OTC [Suspect]
     Active Substance: OMEPRAZOLE MAGNESIUM
     Indication: DYSPEPSIA
     Dosage: IN THE MORNING
     Route: 048
     Dates: start: 20190506, end: 20190506

REACTIONS (3)
  - Product use complaint [Recovered/Resolved]
  - Product use issue [Unknown]
  - Product dose omission [Recovering/Resolving]

NARRATIVE: CASE EVENT DATE: 20190506
